FAERS Safety Report 17899470 (Version 1)
Quarter: 2020Q2

REPORT INFORMATION
  Report Type: Spontaneous
  Country: US (occurrence: US)
  Receive Date: 20200615
  Receipt Date: 20200615
  Transmission Date: 20200714
  Serious: No
  Sender: FDA-Public Use
  Company Number: None

PATIENT
  Age: 68 Year
  Sex: Male
  Weight: 63 kg

DRUGS (11)
  1. DEXTROMETHORPHAN [Concomitant]
     Active Substance: DEXTROMETHORPHAN
     Dates: start: 20200607
  2. MAGNESIUN OXIDE [Concomitant]
     Dates: start: 20200605
  3. CISATRACURIUM. [Concomitant]
     Active Substance: CISATRACURIUM
     Dates: start: 20200612
  4. LACTULOSE. [Concomitant]
     Active Substance: LACTULOSE
     Dates: start: 20200605
  5. ASPIRIN. [Concomitant]
     Active Substance: ASPIRIN
     Dates: start: 20200604
  6. ATORVASTATIN [Concomitant]
     Active Substance: ATORVASTATIN
     Dates: start: 20200604
  7. ENOXAPARIN [Concomitant]
     Active Substance: ENOXAPARIN
     Dates: start: 20200614
  8. GABAPENTIN. [Concomitant]
     Active Substance: GABAPENTIN
     Dates: start: 20200604
  9. REMDESIVIR. [Suspect]
     Active Substance: REMDESIVIR
     Indication: COVID-19
     Route: 042
     Dates: start: 20200607, end: 20200612
  10. ACETOMINOPHEN [Concomitant]
     Active Substance: ACETAMINOPHEN
     Dates: start: 20200605
  11. COMPAZINE [Concomitant]
     Active Substance: PROCHLORPERAZINE MALEATE
     Dates: start: 20200603

REACTIONS (3)
  - Transaminases increased [None]
  - Alanine aminotransferase increased [None]
  - Ischaemic hepatitis [None]

NARRATIVE: CASE EVENT DATE: 20200613
